FAERS Safety Report 23978697 (Version 1)
Quarter: 2024Q2

REPORT INFORMATION
  Report Type: Spontaneous
  Country: US (occurrence: US)
  Receive Date: 20240614
  Receipt Date: 20240614
  Transmission Date: 20240717
  Serious: No
  Sender: FDA-Public Use
  Company Number: US-ABBVIE-5794465

PATIENT
  Age: 80 Year
  Sex: Female
  Weight: 64 kg

DRUGS (4)
  1. VRAYLAR [Suspect]
     Active Substance: CARIPRAZINE
     Indication: Depression
     Dosage: FORM STRENGTH: 3 MILLIGRAM
     Route: 048
     Dates: start: 2023, end: 202402
  2. VRAYLAR [Suspect]
     Active Substance: CARIPRAZINE
     Indication: Depression
     Dosage: FORM STRENGTH: 1.5 MILLIGRAM
     Route: 048
     Dates: start: 202404
  3. MIRTAZAPINE [Suspect]
     Active Substance: MIRTAZAPINE
     Indication: Depression
     Route: 065
  4. LEVOTHYROXINE [Concomitant]
     Active Substance: LEVOTHYROXINE\LEVOTHYROXINE SODIUM
     Indication: Thyroid disorder

REACTIONS (1)
  - Fatigue [Not Recovered/Not Resolved]

NARRATIVE: CASE EVENT DATE: 20240401
